FAERS Safety Report 5472347-1 (Version None)
Quarter: 2007Q3

REPORT INFORMATION
  Report Type: 
  Country: None (occurrence: None)
  Receive Date: 20070930
  Receipt Date: 20070920
  Transmission Date: 20080115
  Serious: Yes (Other)
  Sender: FDA-Public Use
  Company Number: SE-SHR-SE-2006-036743

PATIENT
  Sex: Female
  Weight: 56.6 kg

DRUGS (2)
  1. YASMIN [Suspect]
     Dosage: 1 TAB(S), 21D/28D
     Route: 048
     Dates: start: 20050401
  2. ASACOL [Concomitant]

REACTIONS (2)
  - HEPATIC STEATOSIS [None]
  - HEPATITIS [None]
